FAERS Safety Report 13419246 (Version 2)
Quarter: 2017Q2

REPORT INFORMATION
  Report Type: Report from Study
  Country: None (occurrence: US)
  Receive Date: 20170407
  Receipt Date: 20170526
  Transmission Date: 20170830
  Serious: Yes (Hospitalization, Other)
  Sender: FDA-Public Use
  Company Number: US-ABBVIE-17K-163-1932851-00

PATIENT
  Age: 35 Year
  Sex: Female
  Weight: 86.26 kg

DRUGS (10)
  1. HUMIRA [Suspect]
     Active Substance: ADALIMUMAB
     Indication: HIDRADENITIS
     Route: 058
     Dates: start: 2016, end: 20170219
  2. PAROXETINE. [Concomitant]
     Active Substance: PAROXETINE
     Indication: ANXIETY
  3. LISINOPRIL. [Concomitant]
     Active Substance: LISINOPRIL
     Indication: PRODUCT USED FOR UNKNOWN INDICATION
  4. AMLODIPINE [Concomitant]
     Active Substance: AMLODIPINE BESYLATE
     Indication: PRODUCT USED FOR UNKNOWN INDICATION
  5. PANTOPRAZOLE [Concomitant]
     Active Substance: PANTOPRAZOLE
     Indication: PRODUCT USED FOR UNKNOWN INDICATION
  6. IMITREX [Concomitant]
     Active Substance: SUMATRIPTAN SUCCINATE
     Indication: MIGRAINE
  7. VITAMIN B12 [Concomitant]
     Active Substance: CYANOCOBALAMIN
     Indication: PRODUCT USED FOR UNKNOWN INDICATION
  8. LEVOTHYROXINE. [Concomitant]
     Active Substance: LEVOTHYROXINE
     Indication: HYPOTHYROIDISM
  9. LEVETIRACETAM. [Concomitant]
     Active Substance: LEVETIRACETAM
     Indication: PRODUCT USED FOR UNKNOWN INDICATION
  10. HEPARIN [Concomitant]
     Active Substance: HEPARIN SODIUM
     Indication: PROPHYLAXIS

REACTIONS (10)
  - Deep vein thrombosis [Recovered/Resolved]
  - Cerebrospinal fluid leakage [Not Recovered/Not Resolved]
  - Craniocerebral injury [Recovered/Resolved with Sequelae]
  - Injection site extravasation [Recovered/Resolved]
  - Memory impairment [Not Recovered/Not Resolved]
  - Intracranial aneurysm [Recovered/Resolved with Sequelae]
  - Cerebral vasoconstriction [Recovered/Resolved]
  - Cerebrovascular accident [Recovering/Resolving]
  - Cellulitis [Recovered/Resolved]
  - Pain [Recovered/Resolved]

NARRATIVE: CASE EVENT DATE: 2017
